FAERS Safety Report 25902351 (Version 1)
Quarter: 2025Q4

REPORT INFORMATION
  Report Type: Spontaneous
  Country: US (occurrence: US)
  Receive Date: 20251009
  Receipt Date: 20251009
  Transmission Date: 20260117
  Serious: Yes (Other)
  Sender: AMGEN
  Company Number: US-AMGEN-USASP2025199483

PATIENT
  Age: 78 Year
  Sex: Male

DRUGS (12)
  1. PREDNISONE [Suspect]
     Active Substance: PREDNISONE
     Indication: Capillary leak syndrome
     Dosage: 60 MILLIGRAM, QD
     Route: 048
  2. PREDNISONE [Suspect]
     Active Substance: PREDNISONE
     Indication: Eosinophilic fasciitis
     Dosage: UNK, TAPERED OVER THREE MONTHS
     Route: 048
  3. PREDNISONE [Suspect]
     Active Substance: PREDNISONE
     Dosage: 60 MILLIGRAM, QD
     Route: 065
  4. PREDNISONE [Suspect]
     Active Substance: PREDNISONE
     Dosage: UNK, GRADUAL TAPER
     Route: 065
  5. BCG VACCINE [Concomitant]
     Active Substance: BCG VACCINE
     Indication: Bladder cancer
     Route: 043
  6. GEMCITABINE [Concomitant]
     Active Substance: GEMCITABINE
     Indication: Bladder cancer
     Route: 043
  7. DOCETAXEL [Concomitant]
     Active Substance: DOCETAXEL
     Indication: Bladder cancer
  8. CABAZITAXEL [Concomitant]
     Active Substance: CABAZITAXEL
     Indication: Bladder cancer
  9. PEMBROLIZUMAB [Concomitant]
     Active Substance: PEMBROLIZUMAB
     Indication: Bladder cancer
     Dosage: 3 MILLIGRAM/KILOGRAM, INFUSIONS
  10. Immunoglobulin [Concomitant]
     Indication: Bladder cancer
     Dosage: UNK, 2 G/KG IN 2 DIVIDED DOSES OVER TWO DAYS
     Route: 040
  11. FUROSEMIDE [Concomitant]
     Active Substance: FUROSEMIDE
     Indication: Bladder cancer
  12. METHYLPREDNISOLONE [Concomitant]
     Active Substance: METHYLPREDNISOLONE
     Indication: Bladder cancer
     Dosage: 1 MILLIGRAM/KILOGRAM
     Route: 040

REACTIONS (4)
  - Eosinophilic fasciitis [Unknown]
  - Drug effective for unapproved indication [Unknown]
  - Drug ineffective for unapproved indication [Unknown]
  - Off label use [Unknown]
